FAERS Safety Report 10086051 (Version 1)
Quarter: 2014Q2

REPORT INFORMATION
  Report Type: Spontaneous
  Country: FR (occurrence: None)
  Receive Date: 20140415
  Receipt Date: 20140415
  Transmission Date: 20141212
  Serious: Yes (Hospitalization)
  Sender: FDA-Public Use
  Company Number: 08-AUR-03708

PATIENT
  Age: 75 Year
  Sex: Male

DRUGS (7)
  1. METFORMIN [Suspect]
     Indication: DIABETES MELLITUS
     Dosage: 1700 MG (850MG, 2 IN 1 D), ORAL
  2. FLUDARABINE [Suspect]
     Indication: LYMPHOMA
     Dosage: 40MG/M2, 1 D), ORAL
     Route: 048
     Dates: start: 2007
  3. CLOPIDOGREL (CLOPIDOGREL) [Concomitant]
  4. MOLSIDOMINE (MOLSIDOMINE) [Concomitant]
  5. ENALAPRIL (ENALAPRIL) [Concomitant]
  6. ACEBUTOLOL (ACEBUTOLOL) [Concomitant]
  7. WARFARIN (WARFARIN) [Concomitant]

REACTIONS (1)
  - Autoimmune neutropenia [None]
